FAERS Safety Report 5006162-X (Version None)
Quarter: 2006Q1

REPORT INFORMATION
  Report Type: 
  Country: None (occurrence: None)
  Receive Date: 20060328
  Receipt Date: 20050303
  Transmission Date: 20060701
  Serious: Yes (Hospitalization)
  Sender: FDA-Public Use
  Company Number: K200500306

PATIENT
  Age: 65 Year
  Sex: Female
  Weight: 52.2 kg

DRUGS (8)
  1. ALTACE [Suspect]
     Indication: HYPERTENSION
     Dosage: SEE IMAGE
     Route: 048
     Dates: start: 19990101, end: 19990101
  2. ALTACE [Suspect]
     Indication: HYPERTENSION
     Dosage: SEE IMAGE
     Route: 048
     Dates: start: 19990101, end: 19990101
  3. ALTACE [Suspect]
     Indication: HYPERTENSION
     Dosage: SEE IMAGE
     Route: 048
     Dates: start: 19990101, end: 19990101
  4. ALTACE [Suspect]
     Indication: HYPERTENSION
     Dosage: SEE IMAGE
     Route: 048
     Dates: start: 19980101
  5. ALTACE [Suspect]
     Indication: HYPERTENSION
     Dosage: SEE IMAGE
     Route: 048
     Dates: start: 19990101
  6. LUVOX [Suspect]
     Indication: DEPRESSION
     Dosage: ORAL
     Route: 048
     Dates: start: 19990101, end: 19990101
  7. LOZOL [Concomitant]
  8. LORAZEPAM [Concomitant]

REACTIONS (10)
  - ANXIETY [None]
  - ASTHENIA [None]
  - BLOOD PRESSURE INCREASED [None]
  - COUGH [None]
  - DEPRESSION [None]
  - FATIGUE [None]
  - HEADACHE [None]
  - MUSCLE SPASMS [None]
  - NON-CARDIAC CHEST PAIN [None]
  - VENTRICULAR EXTRASYSTOLES [None]
